FAERS Safety Report 7346412-8 (Version None)
Quarter: 2011Q1

REPORT INFORMATION
  Report Type: 
  Country: None (occurrence: None)
  Receive Date: 20110311
  Receipt Date: 20110301
  Transmission Date: 20110831
  Serious: Yes (Other)
  Sender: FDA-Public Use
  Company Number: US-RB-023545-09

PATIENT
  Age: 50 Year
  Sex: Male

DRUGS (7)
  1. SUBOXONE [Suspect]
     Route: 060
  2. STATIN TYPE MEDICATION [Concomitant]
     Indication: BLOOD CHOLESTEROL INCREASED
     Dosage: DOSING INFORMATION UNKNOWN
     Route: 065
  3. SUBOXONE [Suspect]
     Route: 060
     Dates: start: 20080101, end: 20090901
  4. LISINOPRIL [Concomitant]
     Indication: HYPERTENSION
     Dosage: DOSING INFORMATION UNKNOWN
     Route: 065
     Dates: start: 20090901
  5. SUBOXONE [Suspect]
     Indication: DRUG DEPENDENCE
     Route: 060
     Dates: start: 20090901, end: 20090901
  6. STATIN TYPE MEDICATION [Concomitant]
     Indication: BLOOD TRIGLYCERIDES INCREASED
     Dosage: DOSING INFORMATION UNKNOWN
     Route: 065
  7. SUBOXONE [Suspect]
     Route: 060
     Dates: start: 20090901

REACTIONS (12)
  - SUICIDAL IDEATION [None]
  - WHITE BLOOD CELL COUNT INCREASED [None]
  - FATIGUE [None]
  - DYSPHEMIA [None]
  - STRESS [None]
  - DRUG WITHDRAWAL SYNDROME [None]
  - PSYCHOMOTOR HYPERACTIVITY [None]
  - INCORRECT ROUTE OF DRUG ADMINISTRATION [None]
  - SOMNOLENCE [None]
  - CHEST PAIN [None]
  - ERECTILE DYSFUNCTION [None]
  - ENERGY INCREASED [None]
